FAERS Safety Report 25297588 (Version 2)
Quarter: 2025Q2

REPORT INFORMATION
  Report Type: Spontaneous
  Country: FR (occurrence: FR)
  Receive Date: 20250511
  Receipt Date: 20250515
  Transmission Date: 20250716
  Serious: Yes (Death, Other)
  Sender: JOHNSON AND JOHNSON
  Company Number: FR-JNJFOC-20250507148

PATIENT
  Sex: Female

DRUGS (1)
  1. RYBREVANT [Suspect]
     Active Substance: AMIVANTAMAB-VMJW
     Indication: Lung cancer metastatic
     Route: 065
     Dates: start: 20250424

REACTIONS (4)
  - Death [Fatal]
  - Pancytopenia [Unknown]
  - Vulvovaginitis [Unknown]
  - Mucosal toxicity [Unknown]
